FAERS Safety Report 19184887 (Version 2)
Quarter: 2021Q3

REPORT INFORMATION
  Report Type: Report from Study
  Country: DE (occurrence: DE)
  Receive Date: 20210427
  Receipt Date: 20210713
  Transmission Date: 20211014
  Serious: Yes (Hospitalization)
  Sender: FDA-Public Use
  Company Number: ES-GPPHARM-2021000052

PATIENT
  Sex: Male
  Weight: 117 kg

DRUGS (1)
  1. LUTRATE DEPOT [Suspect]
     Active Substance: LEUPROLIDE ACETATE
     Indication: PROSTATE CANCER
     Route: 030
     Dates: start: 20200629, end: 20201221

REACTIONS (2)
  - Pyrexia [Recovered/Resolved]
  - Bacteraemia [Recovered/Resolved]

NARRATIVE: CASE EVENT DATE: 20210102
